FAERS Safety Report 4605021-1 (Version None)
Quarter: 2005Q1

REPORT INFORMATION
  Report Type: 
  Country: None (occurrence: None)
  Receive Date: 20050217
  Receipt Date: 20041223
  Transmission Date: 20050727
  Serious: No
  Sender: FDA-Public Use
  Company Number: S04-USA-07943-01

PATIENT
  Age: 94 Year
  Sex: Male

DRUGS (10)
  1. NAMENDA [Suspect]
     Indication: DEMENTIA
     Dosage: 5 MG BID PO
     Route: 048
     Dates: start: 20041011, end: 20041017
  2. NAMENDA [Suspect]
     Indication: DEMENTIA
     Dosage: 15 MG QD PO
     Route: 048
     Dates: start: 20041018, end: 20041024
  3. NAMENDA [Suspect]
     Indication: DEMENTIA
     Dosage: 10 MG BID PO
     Route: 048
     Dates: start: 20041025, end: 20041206
  4. NAMENDA [Suspect]
     Indication: DEMENTIA
     Dosage: 5 MG QD PO
     Route: 048
     Dates: start: 20041004, end: 20041010
  5. COUMADIN [Concomitant]
  6. SYNTHROID [Concomitant]
  7. MULTI-VITAMIN [Concomitant]
  8. HYDROCHLOROTHIAZIDE [Concomitant]
  9. XALATAN [Concomitant]
  10. SORBITOL [Concomitant]

REACTIONS (10)
  - CONFUSIONAL STATE [None]
  - DECREASED APPETITE [None]
  - FALL [None]
  - GAIT DISTURBANCE [None]
  - HALLUCINATION, VISUAL [None]
  - RASH [None]
  - SKIN LACERATION [None]
  - URINARY RETENTION [None]
  - URINARY TRACT INFECTION [None]
  - WEIGHT DECREASED [None]
